FAERS Safety Report 6647011-3 (Version None)
Quarter: 2010Q1

REPORT INFORMATION
  Report Type: 
  Country: None (occurrence: None)
  Receive Date: 20100323
  Receipt Date: 20091221
  Transmission Date: 20100710
  Serious: No
  Sender: FDA-Public Use
  Company Number: A0836195A

PATIENT
  Age: 68 Year
  Sex: Male

DRUGS (3)
  1. LAMICTAL CD [Suspect]
     Indication: EPILEPSY
     Dosage: 400MG PER DAY
     Route: 048
     Dates: start: 20091115
  2. KEPPRA [Concomitant]
  3. IMMUNE GLOBULIN INTRAVENOUS (HUMAN) [Concomitant]

REACTIONS (5)
  - BALANCE DISORDER [None]
  - COORDINATION ABNORMAL [None]
  - FEELING JITTERY [None]
  - NERVOUSNESS [None]
  - VISUAL IMPAIRMENT [None]
